FAERS Safety Report 5163009-9 (Version None)
Quarter: 2006Q4

REPORT INFORMATION
  Report Type: 
  Country: None (occurrence: None)
  Receive Date: 20061201
  Receipt Date: 20061122
  Transmission Date: 20070319
  Serious: Yes (Hospitalization)
  Sender: FDA-Public Use
  Company Number: US-BRISTOL-MYERS SQUIBB COMPANY-13587316

PATIENT
  Age: 66 Year
  Sex: Female

DRUGS (11)
  1. PACLITAXEL [Suspect]
     Indication: INFLAMMATORY CARCINOMA OF THE BREAST
     Route: 042
  2. LAPATINIB [Suspect]
     Indication: INFLAMMATORY CARCINOMA OF THE BREAST
     Route: 048
  3. GABAPENTIN [Concomitant]
  4. OMEPRAZOLE [Concomitant]
  5. BENICAR HCT [Concomitant]
  6. ATENOLOL [Concomitant]
  7. LEVOTHYROXINE SODIUM [Concomitant]
  8. METFORMIN HCL [Concomitant]
  9. NICOTINE [Concomitant]
  10. WARFARIN SODIUM [Concomitant]
  11. LOPERAMIDE HCL [Concomitant]

REACTIONS (4)
  - DIARRHOEA [None]
  - HYPOTENSION [None]
  - RENAL FAILURE ACUTE [None]
  - URINARY TRACT INFECTION [None]
